FAERS Safety Report 4320819-5 (Version None)
Quarter: 2004Q1

REPORT INFORMATION
  Report Type: 
  Country: None (occurrence: None)
  Receive Date: 20040322
  Receipt Date: 20020516
  Transmission Date: 20041129
  Serious: Yes (Hospitalization)
  Sender: FDA-Public Use
  Company Number: WAES 0205USA02059

PATIENT
  Age: 80 Year
  Sex: Male
  Weight: 77 kg

DRUGS (10)
  1. TYLENOL (CAPLET) [Concomitant]
  2. AUGMENTIN [Concomitant]
  3. CLONAZEPAM [Concomitant]
  4. DIABETA [Concomitant]
  5. ZESTRIL [Concomitant]
  6. REGLAN [Concomitant]
  7. ACIPHEX [Concomitant]
  8. RANITIDINE [Concomitant]
  9. VIOXX [Suspect]
     Indication: ARTHRITIS
     Route: 048
     Dates: start: 19991124, end: 20010801
  10. COUMADIN [Concomitant]
     Indication: BLOOD DISORDER
     Dates: start: 19930101

REACTIONS (8)
  - BACK DISORDER [None]
  - BLOOD DISORDER [None]
  - GASTRIC DISORDER [None]
  - GASTROINTESTINAL DISORDER [None]
  - HYPERTENSION [None]
  - OSTEOARTHRITIS [None]
  - SKIN INFECTION [None]
  - SLEEP DISORDER [None]
